FAERS Safety Report 20751961 (Version 2)
Quarter: 2022Q3

REPORT INFORMATION
  Report Type: Report from Study
  Country: US (occurrence: US)
  Receive Date: 20220426
  Receipt Date: 20220815
  Transmission Date: 20221027
  Serious: Yes (Hospitalization, Other)
  Sender: FDA-Public Use
  Company Number: US-PFIZER INC-202101212380

PATIENT
  Age: 75 Year
  Sex: Male

DRUGS (3)
  1. INLYTA [Suspect]
     Active Substance: AXITINIB
     Dosage: 5 MG
     Dates: start: 20210423
  2. INLYTA [Suspect]
     Active Substance: AXITINIB
     Dosage: 5 MG, 2X/DAY (1 TAB Q 12)
  3. INLYTA [Suspect]
     Active Substance: AXITINIB
     Dosage: 5 MG, DAILY (1 TAB DAILY)

REACTIONS (18)
  - Weight decreased [Unknown]
  - Tooth extraction [Unknown]
  - Dehydration [Unknown]
  - Blood glucose abnormal [Unknown]
  - Off label use [Unknown]
  - Asthenia [Unknown]
  - Fatigue [Unknown]
  - Decreased appetite [Recovering/Resolving]
  - Nausea [Recovering/Resolving]
  - Diarrhoea [Recovering/Resolving]
  - Depression [Unknown]
  - Oral disorder [Unknown]
  - Sinus headache [Unknown]
  - Stomatitis [Recovering/Resolving]
  - Insomnia [Unknown]
  - Dyspnoea exertional [Unknown]
  - Fungal skin infection [Unknown]
  - Dyspnoea [Unknown]
